FAERS Safety Report 6818356-9 (Version None)
Quarter: 2010Q3

REPORT INFORMATION
  Report Type: 
  Country: None (occurrence: None)
  Receive Date: 20100706
  Receipt Date: 20071222
  Transmission Date: 20110219
  Serious: No
  Sender: FDA-Public Use
  Company Number: US-PFIZER INC-2007053712

PATIENT
  Sex: Female

DRUGS (1)
  1. ZITHROMAX [Suspect]
     Indication: PNEUMONIA
     Dates: start: 20070625

REACTIONS (3)
  - CHROMATURIA [None]
  - MICTURITION FREQUENCY DECREASED [None]
  - VAGINAL DISCHARGE [None]
